FAERS Safety Report 20189910 (Version 1)
Quarter: 2021Q4

REPORT INFORMATION
  Report Type: Spontaneous
  Country: IT (occurrence: IT)
  Receive Date: 20211215
  Receipt Date: 20211215
  Transmission Date: 20220304
  Serious: Yes (Death, Other)
  Sender: FDA-Public Use
  Company Number: IT-GILEAD-2021-0561608

PATIENT
  Sex: Male

DRUGS (1)
  1. YESCARTA [Suspect]
     Active Substance: AXICABTAGENE CILOLEUCEL
     Indication: Lymphoma
     Dosage: UNK
     Route: 042
     Dates: start: 20210916, end: 20210916

REACTIONS (5)
  - Sepsis [Fatal]
  - Cytokine release syndrome [Unknown]
  - Lymphoma [Not Recovered/Not Resolved]
  - Nervous system disorder [Unknown]
  - Infection [Unknown]
